FAERS Safety Report 4692687-3 (Version None)
Quarter: 2005Q2

REPORT INFORMATION
  Report Type: 
  Country: None (occurrence: None)
  Receive Date: 20050617
  Receipt Date: 20030710
  Transmission Date: 20051028
  Serious: Yes (Hospitalization)
  Sender: FDA-Public Use
  Company Number: NO-MERCK-0307NOR00011

PATIENT
  Age: 75 Year
  Sex: Male

DRUGS (6)
  1. VIOXX [Suspect]
     Indication: BACK PAIN
     Route: 048
     Dates: start: 20030501, end: 20030615
  2. WARFARIN SODIUM [Concomitant]
     Route: 065
  3. RISPERIDONE [Concomitant]
     Route: 048
  4. SERTRALINE HYDROCHLORIDE [Concomitant]
     Route: 048
  5. INSULIN HUMAN, ISOPHANE [Concomitant]
     Indication: DIABETES MELLITUS
     Route: 058
  6. FOLIC ACID [Concomitant]
     Route: 048

REACTIONS (3)
  - FACTITIOUS DISORDER [None]
  - HAEMATEMESIS [None]
  - ULCER [None]
